FAERS Safety Report 26123808 (Version 1)
Quarter: 2025Q4

REPORT INFORMATION
  Report Type: Spontaneous
  Country: US (occurrence: NZ)
  Receive Date: 20251205
  Receipt Date: 20251205
  Transmission Date: 20260118
  Serious: No
  Sender: SANDOZ
  Company Number: US-SANDOZ-SDZ2025NZ078105

PATIENT
  Sex: Female

DRUGS (1)
  1. ESTRADIOL [Suspect]
     Active Substance: ESTRADIOL
     Indication: Menopause
     Dosage: UNK (ESTRADOT TRANSDERMAL PATCHES (VARIOUS STRENGTHS, MAINLY 100MCG)
     Route: 062

REACTIONS (5)
  - Menopausal symptoms [Unknown]
  - Mental disorder [Unknown]
  - Drug ineffective [Unknown]
  - Product adhesion issue [Unknown]
  - Product physical consistency issue [Unknown]
